FAERS Safety Report 8495739-5 (Version None)
Quarter: 2012Q2

REPORT INFORMATION
  Report Type: 
  Country: None (occurrence: None)
  Receive Date: 20120405
  Receipt Date: 20091113
  Transmission Date: 20120825
  Serious: Yes (Other)
  Sender: FDA-Public Use
  Company Number: PHEH2009US16136

PATIENT
  Sex: Female

DRUGS (1)
  1. RECLAST [Suspect]
     Indication: OSTEOPOROSIS POSTMENOPAUSAL
     Dosage: 5 MG, ONCE/SINGLE, INTRAVENOUS
     Route: 042
     Dates: start: 20091111, end: 20091111

REACTIONS (4)
  - HYPOAESTHESIA ORAL [None]
  - PARAESTHESIA [None]
  - PHARYNGEAL HYPOAESTHESIA [None]
  - PARAESTHESIA ORAL [None]
